FAERS Safety Report 15446536 (Version 1)
Quarter: 2018Q3

REPORT INFORMATION
  Report Type: Spontaneous
  Country: US (occurrence: US)
  Receive Date: 20180928
  Receipt Date: 20180928
  Transmission Date: 20181010
  Serious: No
  Sender: FDA-Public Use
  Company Number: US-AMGEN-USASP2018065785

PATIENT
  Age: 83 Year
  Sex: Male

DRUGS (1)
  1. PROLIA [Suspect]
     Active Substance: DENOSUMAB
     Indication: OSTEOPOROSIS
     Dosage: 60 MG, Q6MO
     Route: 065
     Dates: start: 201705, end: 201711

REACTIONS (11)
  - Skin exfoliation [Unknown]
  - Mobility decreased [Unknown]
  - Arthralgia [Unknown]
  - Pollakiuria [Unknown]
  - Bone pain [Unknown]
  - Erythema [Unknown]
  - Coordination abnormal [Recovering/Resolving]
  - Myalgia [Recovering/Resolving]
  - Gait disturbance [Recovering/Resolving]
  - Loss of personal independence in daily activities [Unknown]
  - Balance disorder [Recovering/Resolving]
